FAERS Safety Report 8951022 (Version 1)
Quarter: 2012Q4

REPORT INFORMATION
  Report Type: 
  Country: GB (occurrence: GB)
  Receive Date: 20121207
  Receipt Date: 20121207
  Transmission Date: 20130627
  Serious: Yes (Other)
  Sender: FDA-Public Use
  Company Number: GB-PFIZER INC-2012306337

PATIENT
  Age: 55 Year
  Sex: Female
  Weight: 60 kg

DRUGS (8)
  1. CHAMPIX [Suspect]
     Indication: SMOKING CESSATION THERAPY
     Dosage: 500 ug
     Route: 048
     Dates: start: 20121109, end: 20121111
  2. UNIPHYLLIN [Interacting]
     Dosage: 200mg 2x/day
     Route: 048
  3. ACETYLSALICYLIC ACID [Concomitant]
  4. ATROVENT [Concomitant]
  5. SALBUTAMOL [Concomitant]
  6. FLUTICASONE [Concomitant]
  7. LANSOPRAZOLE [Concomitant]
  8. DOMPERIDONE [Concomitant]

REACTIONS (6)
  - Drug interaction [Recovering/Resolving]
  - Nausea [Recovering/Resolving]
  - Vomiting [Recovering/Resolving]
  - Diarrhoea [Recovering/Resolving]
  - Palpitations [Recovering/Resolving]
  - Drug level increased [Recovering/Resolving]
